FAERS Safety Report 15522847 (Version 1)
Quarter: 2018Q4

REPORT INFORMATION
  Report Type: Spontaneous
  Country: US (occurrence: US)
  Receive Date: 20181015
  Receipt Date: 20181015
  Transmission Date: 20190205
  Serious: Yes (Hospitalization)
  Sender: FDA-Public Use
  Company Number: None

PATIENT
  Age: 56 Year
  Sex: Female

DRUGS (4)
  1. LORAZEPAM, LEADING 0.5MG [Suspect]
     Active Substance: LORAZEPAM
     Indication: GENERALISED ANXIETY DISORDER
     Route: 048
     Dates: start: 201610, end: 20180911
  2. LORAZEPAM, LEADING 0.5MG [Suspect]
     Active Substance: LORAZEPAM
     Indication: PANIC DISORDER
     Route: 048
     Dates: start: 201610, end: 20180911
  3. LORAZEPAM, WATSON 0.5MG [Suspect]
     Active Substance: LORAZEPAM
     Indication: GENERALISED ANXIETY DISORDER
     Route: 048
     Dates: end: 20180610
  4. LORAZEPAM, WATSON 0.5MG [Suspect]
     Active Substance: LORAZEPAM
     Indication: PANIC DISORDER
     Route: 048
     Dates: end: 20180610

REACTIONS (6)
  - Anxiety [None]
  - Tinnitus [None]
  - Depression [None]
  - Condition aggravated [None]
  - Headache [None]
  - Product substitution [None]

NARRATIVE: CASE EVENT DATE: 20180911
